FAERS Safety Report 5094985-0 (Version None)
Quarter: 2006Q3

REPORT INFORMATION
  Report Type: 
  Country: None (occurrence: None)
  Receive Date: 20060728
  Receipt Date: 20060509
  Transmission Date: 20061208
  Serious: No
  Sender: FDA-Public Use
  Company Number: COT_0442_2006

PATIENT
  Age: 75 Year
  Sex: Female
  Weight: 53.5244 kg

DRUGS (9)
  1. VENTAVIS [Suspect]
     Indication: PULMONARY HYPERTENSION
     Dosage: 5 MCG 6TO9X/DAY IH
     Route: 055
     Dates: start: 20051230
  2. VENTAVIS [Suspect]
     Indication: PULMONARY HYPERTENSION
     Dosage: 5 MCG 6XD IH
     Route: 055
     Dates: end: 20060619
  3. ATENOLOL [Concomitant]
  4. TRIAMTERENE AND HYDROCHLOROTHIAZIDE [Concomitant]
  5. SYNTHROID [Concomitant]
  6. TRAMADOL HCL [Concomitant]
  7. TIMOPTIC [Concomitant]
  8. XALATAN [Concomitant]
  9. CLINDAMYCIN HCL [Concomitant]

REACTIONS (3)
  - HEADACHE [None]
  - ORAL DISCOMFORT [None]
  - THROAT IRRITATION [None]
